FAERS Safety Report 25454005 (Version 1)
Quarter: 2025Q2

REPORT INFORMATION
  Report Type: Spontaneous
  Country: GB (occurrence: GB)
  Receive Date: 20250619
  Receipt Date: 20250619
  Transmission Date: 20250717
  Serious: Yes (Other)
  Sender: ENDO
  Company Number: GB-ENDO USA, INC.-2025-001412

PATIENT
  Sex: Male

DRUGS (3)
  1. KETALAR [Suspect]
     Active Substance: KETAMINE HYDROCHLORIDE
     Indication: Substance use
  2. KETALAR [Suspect]
     Active Substance: KETAMINE HYDROCHLORIDE
  3. KETALAR [Suspect]
     Active Substance: KETAMINE HYDROCHLORIDE

REACTIONS (6)
  - Urinary tract disorder [Recovering/Resolving]
  - Suicidal ideation [Recovering/Resolving]
  - Weight decreased [Recovering/Resolving]
  - Urinary bladder haemorrhage [Recovering/Resolving]
  - Bladder ulcer [Recovering/Resolving]
  - Drug abuse [Recovering/Resolving]
